FAERS Safety Report 4882101-7 (Version None)
Quarter: 2006Q1

REPORT INFORMATION
  Report Type: 
  Country: None (occurrence: None)
  Receive Date: 20060117
  Receipt Date: 20050520
  Transmission Date: 20060701
  Serious: Yes (Hospitalization)
  Sender: FDA-Public Use
  Company Number: US-MERCK-0505USA02567

PATIENT
  Age: 77 Year
  Sex: Female
  Weight: 59 kg

DRUGS (1)
  1. VIOXX [Suspect]
     Indication: OSTEOARTHRITIS
     Route: 048
     Dates: start: 20030201, end: 20030518

REACTIONS (10)
  - ANGINA UNSTABLE [None]
  - ATELECTASIS [None]
  - ATRIAL FIBRILLATION [None]
  - ATRIAL FLUTTER [None]
  - COAGULOPATHY [None]
  - CONSTIPATION [None]
  - CORONARY ARTERY DISEASE [None]
  - CORONARY ARTERY STENOSIS [None]
  - INCISION SITE COMPLICATION [None]
  - MYOCARDIAL INFARCTION [None]
